FAERS Safety Report 17901693 (Version 1)
Quarter: 2020Q2

REPORT INFORMATION
  Report Type: Spontaneous
  Country: US (occurrence: US)
  Receive Date: 20200616
  Receipt Date: 20200616
  Transmission Date: 20200714
  Serious: No
  Sender: FDA-Public Use
  Company Number: US-AMGEN-USASP2020092300

PATIENT
  Age: 71 Year
  Sex: Male

DRUGS (1)
  1. OTEZLA [Suspect]
     Active Substance: APREMILAST
     Indication: PSORIASIS
     Dosage: 30 MILLIGRAM, QD
     Route: 048
     Dates: start: 201911, end: 201912

REACTIONS (6)
  - Spinal operation [Unknown]
  - Feeling abnormal [Unknown]
  - Incorrect dose administered [Unknown]
  - Decreased appetite [Unknown]
  - Psoriasis [Unknown]
  - Disorientation [Unknown]

NARRATIVE: CASE EVENT DATE: 2019
